FAERS Safety Report 25894512 (Version 1)
Quarter: 2025Q4

REPORT INFORMATION
  Report Type: Spontaneous
  Country: GB (occurrence: GB)
  Receive Date: 20251008
  Receipt Date: 20251008
  Transmission Date: 20260117
  Serious: Yes (Other)
  Sender: TEVA
  Company Number: GB-MHRA-TPP11869258C6141585YC1759501805037

PATIENT
  Age: 73 Year
  Sex: Female
  Weight: 84 kg

DRUGS (9)
  1. ROSUVASTATIN [Suspect]
     Active Substance: ROSUVASTATIN
     Indication: Product used for unknown indication
     Dosage: DAILY DOSAGE: 10MG
     Route: 065
     Dates: start: 20250221
  2. METFORMIN HYDROCHLORIDE [Concomitant]
     Active Substance: METFORMIN HYDROCHLORIDE
     Indication: Ill-defined disorder
     Dosage: DAILY DOSAGE: 2 DOSAGE FORM EVENING MEAL
     Dates: start: 20241209
  3. CETIRIZINE [Concomitant]
     Active Substance: CETIRIZINE HYDROCHLORIDE
     Indication: Ill-defined disorder
     Dosage: DAILY DOSAGE: 1 DOSAGE FORM
     Dates: start: 20241209
  4. FLUTICASONE FUROATE [Concomitant]
     Active Substance: FLUTICASONE FUROATE
     Indication: Ill-defined disorder
     Dosage: TWO DOSES IN EACH NOSTRIL ONCE DAILY
     Dates: start: 20250912
  5. LEVOTHYROXINE [Concomitant]
     Active Substance: LEVOTHYROXINE
     Indication: Ill-defined disorder
     Dosage: DAILY DOSAGE: 1 DOSAGE FORM
     Dates: start: 20241209
  6. EMPAGLIFLOZIN [Concomitant]
     Active Substance: EMPAGLIFLOZIN
     Indication: Ill-defined disorder
     Dosage: DAILY DOSAGE: 1 DOSAGE FORM
     Dates: start: 20250507
  7. PERINDOPRIL ERBUMINE [Concomitant]
     Active Substance: PERINDOPRIL ERBUMINE
     Indication: Ill-defined disorder
     Dosage: DAILY DOSAGE: 1 DOSAGE FORM IN THE MORNING
     Dates: start: 20241209
  8. LINAGLIPTIN [Concomitant]
     Active Substance: LINAGLIPTIN
     Indication: Ill-defined disorder
     Dosage: DAILY DOSAGE: 1 DOSAGE FORM
     Dates: start: 20241209
  9. LANOLIN\LIGHT MINERAL OIL\PARAFFIN [Concomitant]
     Active Substance: LANOLIN\LIGHT MINERAL OIL\PARAFFIN
     Indication: Ill-defined disorder
     Dosage: AS DIRECTED
     Dates: start: 20241209

REACTIONS (2)
  - Myalgia [Unknown]
  - Muscle spasms [Recovering/Resolving]
